FAERS Safety Report 22250870 (Version 2)
Quarter: 2023Q2

REPORT INFORMATION
  Report Type: Spontaneous
  Country: CN (occurrence: CN)
  Receive Date: 20230425
  Receipt Date: 20230427
  Transmission Date: 20230721
  Serious: Yes (Hospitalization)
  Sender: FDA-Public Use
  Company Number: CN-002147023-NVSC2023CN090380

PATIENT
  Age: 17 Year
  Sex: Female
  Weight: 60 kg

DRUGS (8)
  1. TEGRETOL [Suspect]
     Active Substance: CARBAMAZEPINE
     Indication: Pain
     Dosage: 0.2 G, BID
     Route: 065
     Dates: start: 20230304, end: 20230307
  2. TEGRETOL [Suspect]
     Active Substance: CARBAMAZEPINE
     Indication: Trigeminal neuralgia
  3. PREDNISONE [Concomitant]
     Active Substance: PREDNISONE
     Indication: Product used for unknown indication
     Dosage: 30 MG, QD
     Route: 048
     Dates: start: 20230317
  4. VITAMIN B [Concomitant]
     Active Substance: VITAMIN B
     Indication: Product used for unknown indication
     Dosage: 2 UNK, TID
     Route: 065
     Dates: start: 20230311, end: 20230320
  5. OLOPATADINE HYDROCHLORIDE [Concomitant]
     Active Substance: OLOPATADINE HYDROCHLORIDE
     Indication: Product used for unknown indication
     Dosage: 5 MG, BID
     Route: 048
     Dates: end: 20230320
  6. SODIUM CHLORIDE [Concomitant]
     Active Substance: SODIUM CHLORIDE
     Indication: Product used for unknown indication
     Dosage: 250 ML
     Route: 065
     Dates: start: 20230311
  7. DEXAMETHASONE SODIUM PHOSPHATE [Concomitant]
     Active Substance: DEXAMETHASONE SODIUM PHOSPHATE
     Indication: Product used for unknown indication
     Dosage: 10 MG, QD
     Route: 041
     Dates: start: 20230311
  8. VITAMIN C [Concomitant]
     Active Substance: ASCORBIC ACID
     Indication: Product used for unknown indication
     Dosage: 2.0 G, QD
     Route: 048

REACTIONS (7)
  - Drug eruption [Recovered/Resolved]
  - Heart rate increased [Recovered/Resolved]
  - Erythema [Recovered/Resolved]
  - Blister [Recovered/Resolved]
  - Lip erosion [Recovered/Resolved]
  - Pain of skin [Recovered/Resolved]
  - Skin injury [Recovered/Resolved]

NARRATIVE: CASE EVENT DATE: 20230307
